FAERS Safety Report 8593894-X (Version None)
Quarter: 2012Q3

REPORT INFORMATION
  Report Type: 
  Country: None (occurrence: None)
  Receive Date: 20120803
  Receipt Date: 20120803
  Transmission Date: 20120928
  Serious: Yes (Hospitalization)
  Sender: FDA-Public Use
  Company Number: None

PATIENT
  Age: 87 Year
  Sex: Female
  Weight: 97 kg

DRUGS (19)
  1. LISINOPRIL [Concomitant]
  2. HUMALOG [Concomitant]
  3. AMBIEN [Concomitant]
  4. LASIX [Concomitant]
  5. ALBUTEROL [Concomitant]
  6. GABAPENTIN [Concomitant]
  7. PLAVIX [Suspect]
     Indication: CORONARY ARTERY DISEASE
     Dosage: 75MG DAILY PO CHRONIC
     Route: 048
  8. AMLODIPINE [Concomitant]
  9. NITROGLYCERIN [Concomitant]
  10. CARVEDILOL [Concomitant]
  11. LANTUS [Concomitant]
  12. BUSPAR [Concomitant]
  13. PROTONIX [Concomitant]
  14. VITAMIN B-12 [Concomitant]
  15. ASPIRIN [Suspect]
     Indication: CORONARY ARTERY DISEASE
     Dosage: 81MG DAILY PO CHRONIC
     Route: 048
  16. FLUTICASONE PROPIONATE [Concomitant]
  17. ISOSORBIDE MONO [Concomitant]
  18. ATORVASTATIN [Concomitant]
  19. VITAMIN D [Concomitant]

REACTIONS (5)
  - CHRONIC OBSTRUCTIVE PULMONARY DISEASE [None]
  - PNEUMONIA [None]
  - CONDITION AGGRAVATED [None]
  - UPPER GASTROINTESTINAL HAEMORRHAGE [None]
  - ARTERIOVENOUS MALFORMATION [None]
